FAERS Safety Report 15734379 (Version 1)
Quarter: 2018Q4

REPORT INFORMATION
  Report Type: Spontaneous
  Country: ES (occurrence: ES)
  Receive Date: 20181218
  Receipt Date: 20181218
  Transmission Date: 20190205
  Serious: Yes (Other)
  Sender: FDA-Public Use
  Company Number: ES-PFIZER INC-2018513750

PATIENT
  Age: 87 Year
  Sex: Female
  Weight: 40.82 kg

DRUGS (20)
  1. FENTANYL. [Suspect]
     Active Substance: FENTANYL
     Indication: GENERAL ANAESTHESIA
     Dosage: UNK (UNK50 MICROGRAMS/H 5 PATCHES, TRANSDERMAL.)
     Route: 062
     Dates: start: 201810
  2. ADIRO [Suspect]
     Active Substance: ASPIRIN
     Dosage: UNK (30 TABLETS)
  3. TORASEMIDE [Suspect]
     Active Substance: TORSEMIDE
     Dosage: UNK (5MG 30 TABLETS)
  4. BRIDION [Suspect]
     Active Substance: SUGAMMADEX
     Indication: NEUROMUSCULAR BLOCKADE REVERSAL
     Dosage: 2 MG/KG, (180 MG), SINGLE
     Route: 042
     Dates: start: 20181006, end: 20181006
  5. DESFLURANE. [Suspect]
     Active Substance: DESFLURANE
     Indication: GENERAL ANAESTHESIA
     Dosage: UNK
     Dates: start: 201810
  6. ZARELIS [Suspect]
     Active Substance: VENLAFAXINE HYDROCHLORIDE
     Dosage: UNK (75MG 30)
  7. CAFINITRINA [CAFFEINE CITRATE;GLYCERYL TRINITRATE] [Suspect]
     Active Substance: CAFFEINE CITRATE\NITROGLYCERIN
     Dosage: UNK (20 TABLETS)
  8. CANDESARTAN. [Suspect]
     Active Substance: CANDESARTAN
     Dosage: UNK (6MG 28 TABLETS)
  9. ROCURONIUM BROMIDE. [Suspect]
     Active Substance: ROCURONIUM BROMIDE
     Indication: GENERAL ANAESTHESIA
     Dosage: UNK
     Dates: start: 201810
  10. CARVEDILOL. [Suspect]
     Active Substance: CARVEDILOL
     Dosage: UNK (6,25MG 28 TABLETS)
  11. LORAZEPAM. [Suspect]
     Active Substance: LORAZEPAM
     Dosage: UNK (5MG 20 TABLETS)
  12. ALPRAZOLAM. [Suspect]
     Active Substance: ALPRAZOLAM
     Dosage: UNK (0.5 MG 30 TABLETS)
  13. PROLIA [Suspect]
     Active Substance: DENOSUMAB
     Dosage: UNK (60MG SOLUTION FOR INJECTION 1 PRE-FILLED SYRINGE 1ML)
  14. OMEPRAZOLE. [Suspect]
     Active Substance: OMEPRAZOLE
     Dosage: UNK (20MG 28 CAPSULES)
  15. HALOPERIDOL. [Suspect]
     Active Substance: HALOPERIDOL
     Dosage: UNK (2 MG/ML ORAL SOLUTION/SUSPENSION DROPS, 30 ML 1 BOTTLE)
  16. CIMASCAL D [Suspect]
     Active Substance: CALCIUM CARBONATE\CHOLECALCIFEROL
     Dosage: UNK (1500MG/400U IU 60 BUCODISPERSIBLE TABLETS)
  17. MANIDIPINE HYDROCHLORIDE [Suspect]
     Active Substance: MANIDIPINE HYDROCHLORIDE
     Dosage: UNK (10MG 28 TABLETS)
  18. DEPRAX [FLUOXETINE HYDROCHLORIDE] [Suspect]
     Active Substance: FLUOXETINE HYDROCHLORIDE
     Dosage: UNK (100MG 60 TABLETS)
  19. PROPOFOL. [Suspect]
     Active Substance: PROPOFOL
     Indication: GENERAL ANAESTHESIA
     Dosage: UNK
     Dates: start: 201810
  20. NITROPLAST [Suspect]
     Active Substance: NITROGLYCERIN
     Dosage: 10 MG, 1X/DAY

REACTIONS (2)
  - Cardiac arrest [Recovered/Resolved]
  - Bradycardia [Recovered/Resolved]

NARRATIVE: CASE EVENT DATE: 20181006
